FAERS Safety Report 5525187-9 (Version None)
Quarter: 2007Q4

REPORT INFORMATION
  Report Type: 
  Country: None (occurrence: None)
  Receive Date: 20071119
  Receipt Date: 20071119
  Transmission Date: 20080405
  Serious: Yes (Other)
  Sender: FDA-Public Use
  Company Number: None

PATIENT
  Age: 68 Year
  Sex: Female
  Weight: 59.9 kg

DRUGS (2)
  1. QUETIAPINE FUMARATE [Suspect]
     Indication: DEPRESSION SUICIDAL
     Dosage: 25MG DAILY PO
     Route: 048
     Dates: start: 20071026, end: 20071029
  2. QUETIAPINE FUMARATE [Suspect]
     Indication: SUICIDE ATTEMPT
     Dosage: 25MG DAILY PO
     Route: 048
     Dates: start: 20071026, end: 20071029

REACTIONS (3)
  - RASH GENERALISED [None]
  - SKIN EXFOLIATION [None]
  - URINARY TRACT INFECTION [None]
